FAERS Safety Report 4734250-1 (Version None)
Quarter: 2005Q3

REPORT INFORMATION
  Report Type: 
  Country: None (occurrence: None)
  Receive Date: 20050729
  Receipt Date: 20050707
  Transmission Date: 20060218
  Serious: Yes (Other)
  Sender: FDA-Public Use
  Company Number: USA0507102170

PATIENT
  Age: 78 Year
  Sex: Male

DRUGS (10)
  1. XIGRIS [Suspect]
     Indication: SEPSIS
     Dates: start: 20050629, end: 20050630
  2. LOTREL [Concomitant]
  3. ASPIRIN [Concomitant]
  4. LASIX (FUROSEMIDE  /00032601/) [Concomitant]
  5. ALLOPURINOL [Concomitant]
  6. PREVACID (LANSOPRAZOLE0 [Concomitant]
  7. LEVOPHED [Concomitant]
  8. ATIVAN [Concomitant]
  9. MULTI-VITAMINS [Concomitant]
  10. FOLIC ACID [Concomitant]

REACTIONS (6)
  - ACTIVATED PARTIAL THROMBOPLASTIN TIME PROLONGED [None]
  - C-REACTIVE PROTEIN INCREASED [None]
  - IMMUNE SYSTEM DISORDER [None]
  - INTERNATIONAL NORMALISED RATIO INCREASED [None]
  - PYREXIA [None]
  - RED BLOOD CELL SEDIMENTATION RATE INCREASED [None]
